FAERS Safety Report 8976963 (Version 1)
Quarter: 2012Q4

REPORT INFORMATION
  Report Type: 
  Country: US (occurrence: US)
  Receive Date: 20121220
  Receipt Date: 20121220
  Transmission Date: 20130627
  Serious: No
  Sender: FDA-Public Use
  Company Number: US-GLAXOSMITHKLINE-A0953132A

PATIENT
  Age: 75 Year
  Sex: Male

DRUGS (7)
  1. SORIATANE [Suspect]
     Indication: PSORIASIS
     Dosage: 25MG Per day
     Route: 048
     Dates: start: 20111024, end: 201111
  2. UNKNOWN MEDICATION [Concomitant]
  3. SIMVASTATIN [Concomitant]
  4. METOPROLOL [Concomitant]
  5. LISINOPRIL [Concomitant]
  6. FUROSEMIDE [Concomitant]
  7. POTASSIUM [Concomitant]

REACTIONS (6)
  - Skin exfoliation [Not Recovered/Not Resolved]
  - Lacrimation increased [Unknown]
  - Weight increased [Unknown]
  - Blood pressure increased [Unknown]
  - Amnesia [Unknown]
  - Onychomadesis [Unknown]
